FAERS Safety Report 21181970 (Version 3)
Quarter: 2022Q4

REPORT INFORMATION
  Report Type: Report from Study
  Country: US (occurrence: US)
  Receive Date: 20220807
  Receipt Date: 20221021
  Transmission Date: 20230112
  Serious: Yes (Hospitalization, Other)
  Sender: FDA-Public Use
  Company Number: US-ABBVIE-22K-163-4493645-00

PATIENT
  Sex: Female
  Weight: 77.11 kg

DRUGS (6)
  1. HUMIRA [Suspect]
     Active Substance: ADALIMUMAB
     Indication: Psoriatic arthropathy
     Dosage: 40MG/0.4ML
     Route: 058
     Dates: start: 202201, end: 202208
  2. HUMIRA [Suspect]
     Active Substance: ADALIMUMAB
     Dosage: 40MG/0.4ML
     Route: 058
     Dates: start: 2022
  3. ALEVE [Concomitant]
     Active Substance: NAPROXEN SODIUM
     Indication: Back pain
  4. MODERNA COVID-19 VACCINE [Concomitant]
     Active Substance: ELASOMERAN
     Indication: COVID-19 immunisation
     Dosage: FIRST DOSE FREQUENCY ONE IN ONCE
     Route: 030
     Dates: start: 20210128, end: 20210128
  5. MODERNA COVID-19 VACCINE [Concomitant]
     Active Substance: ELASOMERAN
     Indication: COVID-19 immunisation
     Dosage: SECOND DOSE FREQUENCY ONE IN ONCE
     Route: 030
     Dates: start: 20210226, end: 20210226
  6. MODERNA COVID-19 VACCINE [Concomitant]
     Active Substance: ELASOMERAN
     Indication: COVID-19 immunisation
     Dosage: BOOSTER DOSE FREQUENCY ONE IN ONCE
     Route: 030
     Dates: start: 20211116, end: 20211116

REACTIONS (7)
  - Cartilage atrophy [Recovering/Resolving]
  - Addison^s disease [Recovering/Resolving]
  - Back pain [Recovering/Resolving]
  - Stress [Unknown]
  - Arthralgia [Recovering/Resolving]
  - Injection site haemorrhage [Recovered/Resolved]
  - Pain in extremity [Recovering/Resolving]

NARRATIVE: CASE EVENT DATE: 20220101
